FAERS Safety Report 5097187-7 (Version None)
Quarter: 2006Q3

REPORT INFORMATION
  Report Type: 
  Country: None (occurrence: None)
  Receive Date: 20060906
  Receipt Date: 20060301
  Transmission Date: 20061208
  Serious: Yes (Hospitalization)
  Sender: FDA-Public Use
  Company Number: US-ROCHE-438841

PATIENT
  Age: 26 Year
  Sex: Male
  Weight: 62.6 kg

DRUGS (2)
  1. ACCUTANE [Suspect]
     Indication: DRUG USE FOR UNKNOWN INDICATION
     Route: 048
     Dates: start: 19920708, end: 19930106
  2. ACCUTANE [Suspect]
     Route: 048
     Dates: start: 19930607, end: 19930706

REACTIONS (25)
  - ABDOMINAL PAIN [None]
  - ACNE CYSTIC [None]
  - ACQUIRED IMMUNODEFICIENCY SYNDROME [None]
  - ALOPECIA [None]
  - ANAEMIA [None]
  - ANOGENITAL WARTS [None]
  - ARTHRALGIA [None]
  - CARDIAC FAILURE CONGESTIVE [None]
  - COLITIS [None]
  - COLITIS ULCERATIVE [None]
  - CROHN'S DISEASE [None]
  - CYST [None]
  - DUODENITIS [None]
  - ILEITIS [None]
  - INFLAMMATORY BOWEL DISEASE [None]
  - INTESTINAL HAEMORRHAGE [None]
  - LIVER FUNCTION TEST ABNORMAL [None]
  - MUSCULOSKELETAL DISORDER [None]
  - MUSCULOSKELETAL PAIN [None]
  - OESOPHAGITIS [None]
  - PYREXIA [None]
  - ROSACEA [None]
  - SMALL INTESTINAL OBSTRUCTION [None]
  - SUICIDAL IDEATION [None]
  - VOMITING [None]
